FAERS Safety Report 17179901 (Version 1)
Quarter: 2019Q4

REPORT INFORMATION
  Report Type: Spontaneous
  Country: US (occurrence: US)
  Receive Date: 20191219
  Receipt Date: 20191219
  Transmission Date: 20200122
  Serious: Yes (Hospitalization)
  Sender: FDA-Public Use
  Company Number: US-PFIZER INC-2019212980

PATIENT
  Age: 8 Year
  Sex: Female

DRUGS (2)
  1. VITAMINS NOS [Concomitant]
     Active Substance: VITAMINS
     Dosage: UNK
  2. GENOTROPIN [Suspect]
     Active Substance: SOMATROPIN
     Indication: GROWTH HORMONE DEFICIENCY
     Dosage: UNK

REACTIONS (7)
  - Dehydration [Unknown]
  - Injection site erythema [Unknown]
  - Product dose omission [Unknown]
  - Incorrect dose administered by device [Unknown]
  - Gastroenteritis viral [Unknown]
  - Device breakage [Unknown]
  - Injection site extravasation [Unknown]
